FAERS Safety Report 16536788 (Version 2)
Quarter: 2020Q2

REPORT INFORMATION
  Report Type: Spontaneous
  Country: US (occurrence: US)
  Receive Date: 20190706
  Receipt Date: 20200526
  Transmission Date: 20200713
  Serious: Yes (Other)
  Sender: FDA-Public Use
  Company Number: US-UCBSA-2019027663

PATIENT
  Age: 61 Year
  Sex: Female

DRUGS (1)
  1. CIMZIA [Suspect]
     Active Substance: CERTOLIZUMAB PEGOL
     Indication: CROHN^S DISEASE
     Dosage: UNK
     Route: 058
     Dates: start: 201808

REACTIONS (5)
  - Abdominal discomfort [Not Recovered/Not Resolved]
  - Therapeutic response shortened [Unknown]
  - Tooth infection [Unknown]
  - Crohn^s disease [Unknown]
  - Dysbiosis [Unknown]

NARRATIVE: CASE EVENT DATE: 20190531
